FAERS Safety Report 4413908-8 (Version None)
Quarter: 2004Q3

REPORT INFORMATION
  Report Type: 
  Country: None (occurrence: None)
  Receive Date: 20040803
  Receipt Date: 20040722
  Transmission Date: 20050211
  Serious: Yes (Death)
  Sender: FDA-Public Use
  Company Number: US-BRISTOL-MYERS SQUIBB COMPANY-12649042

PATIENT
  Age: 19 Year
  Sex: Male

DRUGS (4)
  1. ABILIFY [Suspect]
     Indication: DELUSION
     Dosage: INITIATED AT 5 MG/DAY ON 15-JUL-04, INC TO 10 MG/DAY ON 16-JUL-04.  THE PATIENT DIED ON 22-JUL-04.
     Route: 048
     Dates: start: 20040715
  2. PAXIL [Concomitant]
  3. ZYPREXA [Concomitant]
  4. XANAX [Concomitant]

REACTIONS (1)
  - RENAL FAILURE [None]
